FAERS Safety Report 12760076 (Version 1)
Quarter: 2016Q3

REPORT INFORMATION
  Report Type: Spontaneous
  Country: US (occurrence: US)
  Receive Date: 20160919
  Receipt Date: 20160919
  Transmission Date: 20161109
  Serious: No
  Sender: FDA-Public Use
  Company Number: US-AMNEAL PHARMACEUTICALS-2016AMN00253

PATIENT
  Weight: 107.3 kg

DRUGS (4)
  1. INHALER [Concomitant]
     Active Substance: UNSPECIFIED INGREDIENT
  2. AVODART [Concomitant]
     Active Substance: DUTASTERIDE
  3. STATIN DRUG [Concomitant]
  4. DUTASTERIDE. [Suspect]
     Active Substance: DUTASTERIDE
     Indication: BENIGN PROSTATIC HYPERPLASIA

REACTIONS (1)
  - Drug ineffective [Unknown]
